FAERS Safety Report 6292103-4 (Version None)
Quarter: 2009Q3

REPORT INFORMATION
  Report Type: 
  Country: None (occurrence: None)
  Receive Date: 20090731
  Receipt Date: 20090729
  Transmission Date: 20100115
  Serious: Yes (Other)
  Sender: FDA-Public Use
  Company Number: US-TEVA-203372USA

PATIENT
  Age: 10 Year
  Sex: Male

DRUGS (1)
  1. PROPOFOL [Suspect]
     Dosage: 50 ML VIAL
     Dates: start: 20090723

REACTIONS (4)
  - INFLUENZA LIKE ILLNESS [None]
  - MALAISE [None]
  - PYREXIA [None]
  - VOMITING [None]
